FAERS Safety Report 15206562 (Version 1)
Quarter: 2018Q3

REPORT INFORMATION
  Report Type: Spontaneous
  Country: US (occurrence: US)
  Receive Date: 20180628
  Receipt Date: 20180628
  Transmission Date: 20181010
  Serious: Yes (Other)
  Sender: FDA-Public Use
  Company Number: None

PATIENT

DRUGS (1)
  1. PROTAMINE SULFATE. [Suspect]
     Active Substance: PROTAMINE SULFATE
     Route: 042

REACTIONS (3)
  - Hypotension [None]
  - Bradycardia [None]
  - Pulseless electrical activity [None]

NARRATIVE: CASE EVENT DATE: 20180604
